FAERS Safety Report 20988315 (Version 1)
Quarter: 2022Q2

REPORT INFORMATION
  Report Type: Spontaneous
  Country: US (occurrence: None)
  Receive Date: 20220620
  Receipt Date: 20220620
  Transmission Date: 20220720
  Serious: Yes (Other)
  Sender: FDA-Public Use
  Company Number: None

PATIENT
  Age: 64 Year
  Sex: Female
  Weight: 78.1 kg

DRUGS (3)
  1. OGIVRI [Suspect]
     Active Substance: TRASTUZUMAB-DKST
     Dosage: OTHER FREQUENCY : EVERY 3 WEEKS;?
     Route: 042
     Dates: start: 20200812, end: 20200928
  2. HERCEPTIN [Concomitant]
     Active Substance: TRASTUZUMAB
  3. KANJINTI [Suspect]
     Active Substance: TRASTUZUMAB-ANNS

REACTIONS (3)
  - Drug hypersensitivity [None]
  - Infusion related reaction [None]
  - Therapeutic response changed [None]

NARRATIVE: CASE EVENT DATE: 20200812
